FAERS Safety Report 13294352 (Version 2)
Quarter: 2017Q3

REPORT INFORMATION
  Report Type: Report from Study
  Country: US (occurrence: US)
  Receive Date: 20170303
  Receipt Date: 20170712
  Transmission Date: 20171127
  Serious: Yes (Death)
  Sender: FDA-Public Use
  Company Number: US-VIFOR (INTERNATIONAL) INC.-VIT-2017-02129

PATIENT
  Sex: Male

DRUGS (7)
  1. VELTASSA [Suspect]
     Active Substance: PATIROMER
     Route: 048
     Dates: start: 20160323
  2. ALBUTEROL HFA [Concomitant]
     Active Substance: ALBUTEROL SULFATE
  3. NEXIUM [Concomitant]
     Active Substance: ESOMEPRAZOLE MAGNESIUM
  4. LEVAQUIN [Concomitant]
     Active Substance: LEVOFLOXACIN
  5. VELTASSA [Suspect]
     Active Substance: PATIROMER
     Indication: HYPERKALAEMIA
     Route: 048
  6. QUESTRAN [Concomitant]
     Active Substance: CHOLESTYRAMINE
  7. LACTULOSE. [Concomitant]
     Active Substance: LACTULOSE

REACTIONS (1)
  - Death [Fatal]
